FAERS Safety Report 18601421 (Version 1)
Quarter: 2020Q4

REPORT INFORMATION
  Report Type: Spontaneous
  Country: CN (occurrence: CN)
  Receive Date: 20201210
  Receipt Date: 20201210
  Transmission Date: 20210114
  Serious: Yes (Other)
  Sender: FDA-Public Use
  Company Number: CN-BAYER-2020-269078

PATIENT
  Age: 46 Year
  Sex: Female

DRUGS (2)
  1. IOPROMIDE. [Suspect]
     Active Substance: IOPROMIDE
     Indication: ANGIOCARDIOGRAM
  2. IOPROMIDE. [Suspect]
     Active Substance: IOPROMIDE
     Indication: CHEST DISCOMFORT
     Dosage: 100 ML, ONCE
     Route: 041
     Dates: start: 20201015, end: 20201015

REACTIONS (4)
  - Pruritus [Recovering/Resolving]
  - Conjunctival hyperaemia [None]
  - Amaurosis [Recovering/Resolving]
  - Rash maculo-papular [Recovered/Resolved]

NARRATIVE: CASE EVENT DATE: 20201015
